FAERS Safety Report 7363008 (Version 4)
Quarter: 2013Q1

REPORT INFORMATION
  Report Type: Spontaneous
  Country: US (occurrence: US)
  Receive Date: 20100422
  Receipt Date: 20130322
  Transmission Date: 20140127
  Serious: Yes (Other)
  Sender: FDA-Public Use
  Company Number: US-ASTRAZENECA-2009SE21288

PATIENT
  Age: 57 Year
  Sex: Female

DRUGS (17)
  1. TOPROL XL [Suspect]
     Indication: BLOOD PRESSURE ABNORMAL
     Route: 048
  2. TOPROL XL [Suspect]
     Indication: BLOOD PRESSURE ABNORMAL
     Dosage: GENERIC
     Route: 048
  3. SEROQUEL [Suspect]
     Indication: MENTAL DISORDER
     Route: 048
  4. SEROQUEL [Suspect]
     Indication: DEPRESSION
     Route: 048
  5. SEROQUEL [Suspect]
     Indication: MENTAL DISORDER
     Route: 048
  6. SEROQUEL [Suspect]
     Indication: DEPRESSION
     Route: 048
  7. SEROQUEL [Suspect]
     Indication: MENTAL DISORDER
     Route: 048
     Dates: start: 2001
  8. SEROQUEL [Suspect]
     Indication: DEPRESSION
     Route: 048
     Dates: start: 2001
  9. SEROQUEL [Suspect]
     Indication: MENTAL DISORDER
     Route: 048
     Dates: start: 20110914
  10. SEROQUEL [Suspect]
     Indication: DEPRESSION
     Route: 048
     Dates: start: 20110914
  11. SEROQUEL [Suspect]
     Indication: MENTAL DISORDER
     Route: 048
  12. SEROQUEL [Suspect]
     Indication: DEPRESSION
     Route: 048
  13. SEROQUEL [Suspect]
     Indication: MENTAL DISORDER
     Route: 048
  14. SEROQUEL [Suspect]
     Indication: DEPRESSION
     Route: 048
  15. SEROQUEL [Suspect]
     Indication: MENTAL DISORDER
     Route: 048
  16. SEROQUEL [Suspect]
     Indication: DEPRESSION
     Route: 048
  17. BUTALBITAL [Concomitant]
     Indication: MIGRAINE

REACTIONS (17)
  - Nerve compression [Unknown]
  - Fall [Unknown]
  - Ankle fracture [Unknown]
  - Foot fracture [Unknown]
  - Lower limb fracture [Unknown]
  - Malaise [Unknown]
  - Malaise [Unknown]
  - Concussion [Unknown]
  - Initial insomnia [Unknown]
  - Headache [Unknown]
  - Nervousness [Unknown]
  - Insomnia [Unknown]
  - Nightmare [Unknown]
  - Somnolence [Unknown]
  - Fatigue [Unknown]
  - Off label use [Unknown]
  - Drug ineffective [Unknown]
